FAERS Safety Report 6730317-7 (Version None)
Quarter: 2010Q2

REPORT INFORMATION
  Report Type: 
  Country: None (occurrence: None)
  Receive Date: 20100518
  Receipt Date: 20090529
  Transmission Date: 20101027
  Serious: Yes (Other)
  Sender: FDA-Public Use
  Company Number: JP-ASTRAZENECA-2009AC01010

PATIENT
  Age: 75 Year
  Sex: Male

DRUGS (2)
  1. MEROPEN [Suspect]
     Indication: PNEUMONIA
     Route: 042
     Dates: start: 20090303, end: 20090309
  2. UNASYN [Concomitant]
     Dates: start: 20090227, end: 20090303

REACTIONS (1)
  - HEPATIC FUNCTION ABNORMAL [None]
